FAERS Safety Report 6693162-7 (Version None)
Quarter: 2010Q2

REPORT INFORMATION
  Report Type: 
  Country: None (occurrence: None)
  Receive Date: 20100422
  Receipt Date: 20100413
  Transmission Date: 20101027
  Serious: Yes (Hospitalization)
  Sender: FDA-Public Use
  Company Number: FR-WYE-H14644410

PATIENT
  Age: 77 Year
  Sex: Male

DRUGS (6)
  1. CORDARONE [Suspect]
     Indication: ATRIAL FIBRILLATION
     Route: 048
     Dates: end: 20100215
  2. INIPOMP [Concomitant]
     Dosage: UNSPECIFIED
  3. ZOCOR [Concomitant]
     Dosage: UNSPECIFIED
  4. MOXONIDINE [Concomitant]
     Dosage: UNSPECIFIED
  5. PERINDOPRIL [Concomitant]
     Dosage: UNSPECIFIED
  6. KARDEGIC [Concomitant]
     Dosage: UNSPECIFIED

REACTIONS (1)
  - LUNG DISORDER [None]
